FAERS Safety Report 6738714-0 (Version None)
Quarter: 2010Q2

REPORT INFORMATION
  Report Type: 
  Country: None (occurrence: None)
  Receive Date: 20100520
  Receipt Date: 20100408
  Transmission Date: 20101027
  Serious: Yes (Other)
  Sender: FDA-Public Use
  Company Number: 011421

PATIENT
  Sex: Female

DRUGS (3)
  1. TUSSIONEX [Suspect]
     Indication: COUGH
     Dates: start: 20090101, end: 20090101
  2. TUSSIONEX [Suspect]
     Indication: NASOPHARYNGITIS
     Dates: start: 20090101, end: 20090101
  3. PAXIL [Suspect]
     Indication: DEPRESSION
     Dates: start: 20090101

REACTIONS (2)
  - DRUG SCREEN POSITIVE [None]
  - IMPAIRED DRIVING ABILITY [None]
